FAERS Safety Report 8363317-4 (Version None)
Quarter: 2012Q2

REPORT INFORMATION
  Report Type: 
  Country: None (occurrence: None)
  Receive Date: 20120516
  Receipt Date: 20120514
  Transmission Date: 20120825
  Serious: Yes (Other)
  Sender: FDA-Public Use
  Company Number: US-PFIZER INC-2012117413

PATIENT
  Sex: Female
  Weight: 96.145 kg

DRUGS (11)
  1. NEURONTIN [Suspect]
     Indication: PAIN IN EXTREMITY
  2. NEURONTIN [Suspect]
     Indication: BACK PAIN
  3. LYRICA [Suspect]
     Indication: PAIN IN EXTREMITY
  4. METFORMIN [Concomitant]
     Indication: TYPE 2 DIABETES MELLITUS
     Dosage: 500 MG, 2X/DAY
  5. LOSARTAN [Concomitant]
     Indication: BLOOD PRESSURE ABNORMAL
     Dosage: 50 MG, DAILY
  6. LYRICA [Suspect]
     Indication: NEUROPATHY PERIPHERAL
     Dosage: UNK
  7. NEURONTIN [Suspect]
     Indication: NERVE INJURY
  8. LYRICA [Suspect]
     Indication: NERVE INJURY
  9. LYRICA [Suspect]
     Indication: BACK PAIN
  10. CLONAZEPAM [Concomitant]
     Indication: ANXIETY
     Dosage: 1 MG, 2X/DAY
  11. NEURONTIN [Suspect]
     Indication: NEUROPATHY PERIPHERAL
     Dosage: 900 MG, 3X/DAY

REACTIONS (4)
  - GLAUCOMA [None]
  - MEMORY IMPAIRMENT [None]
  - DEPRESSION [None]
  - WEIGHT INCREASED [None]
